FAERS Safety Report 18707255 (Version 1)
Quarter: 2021Q1

REPORT INFORMATION
  Report Type: Spontaneous
  Country: CN (occurrence: CN)
  Receive Date: 20210106
  Receipt Date: 20210106
  Transmission Date: 20210419
  Serious: Yes (Death)
  Sender: FDA-Public Use
  Company Number: CN-ASTRAZENECA-2020SF75288

PATIENT
  Age: 29 Year
  Sex: Female

DRUGS (6)
  1. RECOMBINANT HUMAN GRANULOCYTE COLONY?STIMULATING FACTOR FOR INJECTI... [Suspect]
     Active Substance: GRANULOCYTE COLONY-STIMULATING FACTOR NOS
     Dosage: 150 ??G, IH
     Route: 065
     Dates: start: 20180608, end: 20180613
  2. LYNPARZA [Suspect]
     Active Substance: OLAPARIB
     Indication: BREAST CANCER
     Route: 048
     Dates: end: 20181210
  3. RECOMBINANT HUMAN INTERLEUKIN?11 FOR INJECTION(RHIL?11) [Suspect]
     Active Substance: OPRELVEKIN
     Dosage: 4 MG, IH
     Route: 065
     Dates: start: 20180608, end: 20180613
  4. LYNPARZA [Suspect]
     Active Substance: OLAPARIB
     Indication: BREAST CANCER
     Route: 048
  5. LYNPARZA [Suspect]
     Active Substance: OLAPARIB
     Indication: BREAST CANCER
     Route: 048
  6. RECOMBINANT HUMANTHROMBOPOIETIN INJECTION(TPO) [Suspect]
     Active Substance: THROMBOPOIETIN
     Dosage: 15 000 U, IH
     Route: 065
     Dates: start: 20180608, end: 20180613

REACTIONS (2)
  - Asthenia [Unknown]
  - Circulatory collapse [Fatal]
